FAERS Safety Report 24303768 (Version 2)
Quarter: 2024Q4

REPORT INFORMATION
  Report Type: Spontaneous
  Country: US (occurrence: US)
  Receive Date: 20240910
  Receipt Date: 20241001
  Transmission Date: 20250115
  Serious: No
  Sender: LGM PHARMA
  Company Number: US-LGM Pharma Solutions, LLC-2161440

PATIENT
  Age: 18 Year
  Sex: Female

DRUGS (5)
  1. CHENODAL [Suspect]
     Active Substance: CHENODIOL
     Indication: Lipid metabolism disorder
     Dates: start: 20190605
  2. TYLENOL [Concomitant]
     Active Substance: ACETAMINOPHEN
  3. NAPROXEN [Concomitant]
     Active Substance: NAPROXEN
  4. MIDOL [Concomitant]
     Active Substance: IBUPROFEN
  5. IMODIUM AD [Concomitant]
     Active Substance: LOPERAMIDE HYDROCHLORIDE

REACTIONS (3)
  - Abdominal discomfort [Not Recovered/Not Resolved]
  - Urinary tract disorder [Unknown]
  - Abdominal distension [Not Recovered/Not Resolved]

NARRATIVE: CASE EVENT DATE: 20240601
